FAERS Safety Report 8883216 (Version 1)
Quarter: 2012Q4

REPORT INFORMATION
  Report Type: 
  Country: US (occurrence: US)
  Receive Date: 20121102
  Receipt Date: 20121102
  Transmission Date: 20130627
  Serious: No
  Sender: FDA-Public Use
  Company Number: US-ABBOTT-12P-163-0954975-00

PATIENT
  Sex: Female

DRUGS (8)
  1. BIAXIN [Suspect]
     Indication: GASTRIC PH DECREASED
  2. BIAXIN [Suspect]
     Indication: HELICOBACTER INFECTION
  3. TIROSINT [Suspect]
     Indication: PRODUCT USED FOR UNKNOWN INDICATION
  4. AMOXICILLIN [Suspect]
     Indication: GASTRIC PH DECREASED
  5. AMOXICILLIN [Suspect]
     Indication: HELICOBACTER INFECTION
  6. PREVACID [Suspect]
     Indication: GASTRIC PH DECREASED
     Dates: end: 20120617
  7. PREVACID [Suspect]
     Indication: HELICOBACTER INFECTION
  8. BETAXOLOL [Concomitant]
     Indication: PRODUCT USED FOR UNKNOWN INDICATION

REACTIONS (1)
  - Thyroxine increased [Recovered/Resolved]
